FAERS Safety Report 6486389-0 (Version None)
Quarter: 2009Q4

REPORT INFORMATION
  Report Type: 
  Country: None (occurrence: None)
  Receive Date: 20091210
  Receipt Date: 20091203
  Transmission Date: 20100525
  Serious: Yes (Hospitalization)
  Sender: FDA-Public Use
  Company Number: US-BIOGENIDEC-2009BI037603

PATIENT
  Age: 59 Year
  Sex: Female

DRUGS (2)
  1. TYSABRI [Suspect]
     Indication: MULTIPLE SCLEROSIS
     Route: 042
     Dates: start: 20070730, end: 20091105
  2. DEXEDRINE [Concomitant]
     Indication: FATIGUE

REACTIONS (3)
  - ADVERSE DRUG REACTION [None]
  - FALL [None]
  - MULTIPLE SCLEROSIS RELAPSE [None]
